FAERS Safety Report 9379843 (Version 1)
Quarter: 2013Q2

REPORT INFORMATION
  Report Type: Spontaneous
  Country: DE (occurrence: None)
  Receive Date: 20130627
  Receipt Date: 20130627
  Transmission Date: 20140414
  Serious: Yes (Other)
  Sender: FDA-Public Use
  Company Number: SYM-2013-05025

PATIENT
  Sex: Male

DRUGS (1)
  1. CICLOPIROX OLAMINE [Suspect]
     Indication: PRODUCT USED FOR UNKNOWN INDICATION
     Dosage: CUTANEOUS
     Dates: start: 201306

REACTIONS (2)
  - Angioedema [None]
  - Urticaria [None]
